FAERS Safety Report 4685941-2 (Version None)
Quarter: 2005Q2

REPORT INFORMATION
  Report Type: 
  Country: None (occurrence: None)
  Receive Date: 20050606
  Receipt Date: 20050524
  Transmission Date: 20051028
  Serious: Yes (Other)
  Sender: FDA-Public Use
  Company Number: HQWYE987926MAY05

PATIENT
  Age: 54 Year
  Sex: Female
  Weight: 81.72 kg

DRUGS (6)
  1. EFFEXOR XR [Suspect]
     Indication: ANXIETY
     Dosage: SEE IMAGE
     Route: 048
     Dates: end: 20050321
  2. EFFEXOR XR [Suspect]
     Indication: DEPRESSION
     Dosage: SEE IMAGE
     Route: 048
     Dates: end: 20050321
  3. EFFEXOR XR [Suspect]
     Indication: ANXIETY
     Dosage: SEE IMAGE
     Route: 048
     Dates: start: 20020101
  4. EFFEXOR XR [Suspect]
     Indication: DEPRESSION
     Dosage: SEE IMAGE
     Route: 048
     Dates: start: 20020101
  5. ATENOLOL [Concomitant]
  6. AVAPRO [Concomitant]

REACTIONS (5)
  - BLOOD PRESSURE INCREASED [None]
  - HEART RATE INCREASED [None]
  - METANEPHRINE URINE INCREASED [None]
  - PANIC ATTACK [None]
  - WEIGHT INCREASED [None]
